FAERS Safety Report 16969902 (Version 1)
Quarter: 2019Q4

REPORT INFORMATION
  Report Type: Spontaneous
  Country: HR (occurrence: HR)
  Receive Date: 20191029
  Receipt Date: 20191029
  Transmission Date: 20200122
  Serious: Yes (Hospitalization, Other)
  Sender: FDA-Public Use
  Company Number: HR-ASTELLAS-2019US042408

PATIENT
  Sex: Male

DRUGS (12)
  1. ADVAGRAF [Suspect]
     Active Substance: TACROLIMUS
     Route: 065
  2. ADVAGRAF [Suspect]
     Active Substance: TACROLIMUS
     Dosage: 2 MG / 1.5 MG, UNKNOWN FREQ.
     Route: 065
  3. PREDNISON [Concomitant]
     Active Substance: PREDNISONE
     Indication: IMMUNOSUPPRESSION
     Route: 065
  4. THYMOGLOBULIN [Concomitant]
     Active Substance: LAPINE T-LYMPHOCYTE IMMUNE GLOBULIN
     Indication: IMMUNOSUPPRESSION
     Dosage: UNK, UNKNOWN FREQ.
     Route: 065
  5. PREDNISON [Concomitant]
     Active Substance: PREDNISONE
     Dosage: 15/10 MG, UNKNOWN FREQ.
     Route: 065
  6. PREDNISON [Concomitant]
     Active Substance: PREDNISONE
     Route: 065
  7. VALGANCICLOVIR. [Concomitant]
     Active Substance: VALGANCICLOVIR
     Indication: PRODUCT USED FOR UNKNOWN INDICATION
     Dosage: UNK UNK, UNKNOWN FREQ.
     Route: 065
     Dates: end: 201609
  8. PROGRAF [Suspect]
     Active Substance: TACROLIMUS
     Indication: IMMUNOSUPPRESSION
     Dosage: UNK UNK, UNKNOWN FREQ.
     Route: 065
  9. ADVAGRAF [Suspect]
     Active Substance: TACROLIMUS
     Indication: IMMUNOSUPPRESSION
     Route: 065
  10. ADVAGRAF [Suspect]
     Active Substance: TACROLIMUS
     Route: 065
  11. PREDNISON [Concomitant]
     Active Substance: PREDNISONE
     Route: 065
  12. PROGRAF [Suspect]
     Active Substance: TACROLIMUS
     Dosage: 0.5+1 MG, UNKNOWN FREQ.
     Route: 065

REACTIONS (9)
  - Urinary tract infection [Unknown]
  - Micturition disorder [Unknown]
  - Cytomegalovirus infection [Unknown]
  - Hypertension [Unknown]
  - Diarrhoea [Unknown]
  - Blood creatinine increased [Unknown]
  - Leukopenia [Unknown]
  - Renal impairment [Unknown]
  - Kidney transplant rejection [Unknown]
